FAERS Safety Report 13425130 (Version 1)
Quarter: 2017Q2

REPORT INFORMATION
  Report Type: Spontaneous
  Country: US (occurrence: US)
  Receive Date: 20170411
  Receipt Date: 20170411
  Transmission Date: 20170830
  Serious: No
  Sender: FDA-Public Use
  Company Number: US-BAUSCH-BL-2016-023154

PATIENT
  Age: 23 Year
  Sex: Male
  Weight: 93.52 kg

DRUGS (1)
  1. POLYMYXIN B SULFATE AND TRIMETHOPRIM [Suspect]
     Active Substance: POLYMYXIN B SULFATE\TRIMETHOPRIM SULFATE
     Indication: CONJUNCTIVITIS
     Dosage: APPLIED 1 DROP IN BOTH EYES EVERY 3 HOURS WHILE AWAKE FOR 7 TO 10 DAYS
     Route: 047
     Dates: start: 20160916

REACTIONS (2)
  - Eye pruritus [Not Recovered/Not Resolved]
  - Drug administration error [Unknown]

NARRATIVE: CASE EVENT DATE: 20160920
